FAERS Safety Report 4839948-2 (Version None)
Quarter: 2005Q4

REPORT INFORMATION
  Report Type: 
  Country: None (occurrence: None)
  Receive Date: 20051129
  Receipt Date: 20051122
  Transmission Date: 20060501
  Serious: Yes (Hospitalization)
  Sender: FDA-Public Use
  Company Number: US-BRISTOL-MYERS SQUIBB COMPANY-13191010

PATIENT
  Age: 64 Year
  Sex: Female

DRUGS (9)
  1. CETUXIMAB [Suspect]
     Indication: NON-SMALL CELL LUNG CANCER
     Route: 042
     Dates: start: 20051003, end: 20051003
  2. CARBOPLATIN [Suspect]
     Indication: NON-SMALL CELL LUNG CANCER
     Route: 042
     Dates: start: 20051003, end: 20051003
  3. TAXOL [Suspect]
     Indication: NON-SMALL CELL LUNG CANCER
     Route: 042
     Dates: start: 20051003, end: 20051003
  4. LOPRESSOR [Concomitant]
     Dates: start: 20030801
  5. SYNTHROID [Concomitant]
     Dates: start: 19940101
  6. BENAZEPRIL HCL [Concomitant]
     Dates: start: 20040101
  7. CENTRUM SILVER [Concomitant]
     Dates: start: 20030801
  8. ASPIRIN [Concomitant]
     Dates: start: 19940101
  9. LIPITOR [Concomitant]
     Dates: start: 20040101

REACTIONS (2)
  - DEHYDRATION [None]
  - HYPOMAGNESAEMIA [None]
